FAERS Safety Report 7501479-9 (Version None)
Quarter: 2011Q2

REPORT INFORMATION
  Report Type: 
  Country: None (occurrence: None)
  Receive Date: 20110524
  Receipt Date: 20110517
  Transmission Date: 20111010
  Serious: Yes (Death, Hospitalization, Other)
  Sender: FDA-Public Use
  Company Number: US-BAYER-200923607NA

PATIENT
  Age: 73 Year
  Sex: Male
  Weight: 68.49 kg

DRUGS (29)
  1. NITROGLYCERIN [Concomitant]
     Dosage: 6.4 MG, UNK
     Route: 048
     Dates: start: 20070604
  2. VERSED [Concomitant]
     Dosage: 2 MG, UNK
     Route: 042
     Dates: start: 20070814
  3. MIDAZOLAM HCL [Concomitant]
     Dosage: 20 MG, UNK
     Route: 042
     Dates: start: 20070814
  4. HEPARIN [Concomitant]
     Dosage: 2000 U, UNK
     Dates: start: 20070814
  5. KANAMYCIN [Concomitant]
     Dosage: 1 G, UNK
     Dates: start: 20070814
  6. IMDUR [Concomitant]
     Dosage: 30 MG, UNK
     Route: 048
     Dates: start: 20070531
  7. ENALAPRIL 1A PHARMA GMBH [Concomitant]
  8. ZINACEF [Concomitant]
     Dosage: 1.5 UNK
     Route: 042
     Dates: start: 20070814
  9. DIGOXIN ALMUS [Concomitant]
     Dosage: 0.25 MG, UNK
     Route: 048
     Dates: start: 20070604
  10. ISOSORBIDE MONONITRATE [Concomitant]
     Dosage: UNK
     Dates: start: 20070514
  11. ASPIRIN [Concomitant]
     Dosage: 81 MG, UNK
     Route: 048
     Dates: start: 20070531
  12. SINEMET [Concomitant]
     Dosage: 25/100
     Route: 048
     Dates: start: 20070531
  13. LASIX [Concomitant]
     Dosage: 40 MG, UNK
     Route: 048
     Dates: start: 20070602
  14. SOLU-CORTEF [Concomitant]
     Dosage: 125 MG, UNK
     Route: 042
     Dates: start: 20070814
  15. ALBUMIN (HUMAN) [Concomitant]
     Dosage: 200 ML, UNK
     Dates: start: 20070814
  16. PROPOFOL [Concomitant]
     Dosage: 300 MG, UNK
     Route: 042
     Dates: start: 20070814
  17. VASOTEC [Concomitant]
     Dosage: 20 MG, UNK
     Route: 048
     Dates: start: 20070531
  18. TOPROL-XL [Concomitant]
     Dosage: 100 MG, UNK
     Route: 048
     Dates: start: 20070531
  19. DIOVAN HCT [Concomitant]
     Dosage: 80 MG, UNK
     Route: 048
     Dates: start: 20070602
  20. AMLODIPINE [Concomitant]
     Dosage: 5 MG, UNK
     Route: 048
     Dates: start: 20070604
  21. FENTANYL [Concomitant]
     Dosage: 1000 MG, UNK
     Route: 042
     Dates: start: 20070814
  22. PROTAMINE SULFATE [Concomitant]
     Dosage: 850 MG, UNK
     Route: 042
     Dates: start: 20070814
  23. MANNITOL [Concomitant]
     Dosage: 12.5 G, UNK
     Dates: start: 20070814
  24. TRASYLOL [Suspect]
     Indication: AORTIC SURGERY
     Dosage: 200 ML/HR
     Route: 042
     Dates: start: 20070814, end: 20070814
  25. INSULIN 2 [Concomitant]
     Dosage: 10 U, UNK
     Route: 042
     Dates: start: 20070814
  26. TRASYLOL [Suspect]
     Indication: CORONARY ARTERY BYPASS
     Dosage: 200 ML/HR
     Route: 042
     Dates: start: 20070814, end: 20070814
  27. CIPROFLOXACIN [Concomitant]
     Dosage: UNK
     Route: 048
     Dates: start: 20070514
  28. HEPARIN [Concomitant]
     Dosage: 53000 U, UNK
     Route: 042
     Dates: start: 20070814
  29. DOBUTAMINE HYDROCHLORIDE [Concomitant]
     Dosage: 5 MCG/KG MINUTE
     Route: 042
     Dates: start: 20070814

REACTIONS (9)
  - RENAL FAILURE CHRONIC [None]
  - PAIN [None]
  - UNEVALUABLE EVENT [None]
  - DEPRESSION [None]
  - RENAL FAILURE ACUTE [None]
  - INSOMNIA [None]
  - INJURY [None]
  - EMOTIONAL DISTRESS [None]
  - PLEURAL EFFUSION [None]
